FAERS Safety Report 20037882 (Version 1)
Quarter: 2021Q4

REPORT INFORMATION
  Report Type: Spontaneous
  Country: US (occurrence: US)
  Receive Date: 20211105
  Receipt Date: 20211105
  Transmission Date: 20220303
  Serious: No
  Sender: FDA-Public Use
  Company Number: US-009507513-2110USA007258

PATIENT
  Age: 52 Year
  Sex: Male

DRUGS (3)
  1. NOXAFIL [Suspect]
     Active Substance: POSACONAZOLE
     Indication: Anti-infective therapy
  2. FUNGIZONE [Concomitant]
     Active Substance: AMPHOTERICIN B
     Indication: Fungal infection
  3. ABELCET [Concomitant]
     Active Substance: AMPHOTERICIN B\DIMYRISTOYLPHOSPHATIDYLCHOLINE, DL-\DIMYRISTOYLPHOSPHATIDYLGLYCEROL, DL-
     Indication: Fungal infection
     Route: 042

REACTIONS (1)
  - Product use in unapproved indication [Unknown]
